FAERS Safety Report 18946050 (Version 1)
Quarter: 2021Q1

REPORT INFORMATION
  Report Type: Spontaneous
  Country: CA (occurrence: CA)
  Receive Date: 20210226
  Receipt Date: 20210226
  Transmission Date: 20210420
  Serious: Yes (Other)
  Sender: FDA-Public Use
  Company Number: CA-TEVA-2021-CA-1882534

PATIENT
  Age: 29 Year
  Sex: Male
  Weight: 90.9 kg

DRUGS (3)
  1. SALOFALK [Concomitant]
  2. PREDNISONE. [Suspect]
     Active Substance: PREDNISONE
     Dosage: FORM STRENGTH UNKNOWN
     Route: 065
     Dates: start: 2021
  3. MEZAVANT [Concomitant]
     Active Substance: MESALAMINE

REACTIONS (2)
  - Haematemesis [Not Recovered/Not Resolved]
  - Nausea [Not Recovered/Not Resolved]

NARRATIVE: CASE EVENT DATE: 202101
